FAERS Safety Report 6243759-3 (Version None)
Quarter: 2009Q2

REPORT INFORMATION
  Report Type: 
  Country: None (occurrence: None)
  Receive Date: 20090624
  Receipt Date: 20090616
  Transmission Date: 20091009
  Serious: Yes (Other)
  Sender: FDA-Public Use
  Company Number: US-WYE-H09784609

PATIENT
  Age: 15 Month
  Sex: Male
  Weight: 13.62 kg

DRUGS (1)
  1. BENEFIX [Suspect]
     Indication: FACTOR IX DEFICIENCY
     Dosage: 1900 U 3 TIMES/WEEK FROM AN UNKNOWN DATE UNTIL 16-JUN-2009; THERAPY WAS INCREASED TO 2300 U 3X/WEEK

REACTIONS (1)
  - FACTOR IX INHIBITION [None]
